FAERS Safety Report 4982620-9 (Version None)
Quarter: 2006Q2

REPORT INFORMATION
  Report Type: 
  Country: None (occurrence: None)
  Receive Date: 20060419
  Receipt Date: 20060331
  Transmission Date: 20061013
  Serious: Yes (Other)
  Sender: FDA-Public Use
  Company Number: US200603000571

PATIENT
  Age: 95 Year
  Sex: Female
  Weight: 48.1 kg

DRUGS (6)
  1. EVISTA [Suspect]
     Indication: OSTEOPOROSIS
     Dosage: 60 MG, ORAL
     Route: 048
     Dates: end: 20050101
  2. ANALGESICS [Concomitant]
  3. LEVOXYL [Concomitant]
  4. PREVACID [Concomitant]
  5. REMERON [Concomitant]
  6. TRENTAL [Concomitant]

REACTIONS (3)
  - DRUG INEFFECTIVE [None]
  - OSTEOPOROTIC FRACTURE [None]
  - THORACIC VERTEBRAL FRACTURE [None]
